FAERS Safety Report 15339007 (Version 1)
Quarter: 2018Q3

REPORT INFORMATION
  Report Type: Spontaneous
  Country: US (occurrence: US)
  Receive Date: 20180828
  Receipt Date: 20180828
  Transmission Date: 20181010
  Serious: No
  Sender: FDA-Public Use
  Company Number: None

PATIENT
  Age: 59 Year
  Sex: Female
  Weight: 49.5 kg

DRUGS (1)
  1. DG HEALTH ALLERGY CHILDRENS [Suspect]
     Active Substance: DIPHENHYDRAMINE HYDROCHLORIDE
     Indication: HYPERSENSITIVITY
     Dosage: ?          QUANTITY:1 5 ML;?
     Route: 048

REACTIONS (4)
  - Feeling hot [None]
  - Hyperhidrosis [None]
  - Therapy change [None]
  - Feeling abnormal [None]

NARRATIVE: CASE EVENT DATE: 20180826
